FAERS Safety Report 6129391-0 (Version None)
Quarter: 2009Q1

REPORT INFORMATION
  Report Type: 
  Country: None (occurrence: None)
  Receive Date: 20090324
  Receipt Date: 20090310
  Transmission Date: 20090719
  Serious: Yes (Other)
  Sender: FDA-Public Use
  Company Number: US-PFIZER INC-2006067455

PATIENT
  Sex: Female
  Weight: 49.887 kg

DRUGS (3)
  1. PROVERA [Suspect]
     Dosage: UNK
     Route: 048
     Dates: start: 19920101, end: 20000101
  2. PREMARIN [Suspect]
     Indication: HORMONE REPLACEMENT THERAPY
     Dosage: 0.3 AND 0.625MG
     Route: 065
     Dates: start: 19840101, end: 20000101
  3. PREMARIN [Suspect]
     Indication: NERVOUSNESS

REACTIONS (1)
  - BREAST CANCER FEMALE [None]
